FAERS Safety Report 6247160-8 (Version None)
Quarter: 2009Q2

REPORT INFORMATION
  Report Type: 
  Country: None (occurrence: None)
  Receive Date: 20090624
  Receipt Date: 20090624
  Transmission Date: 20091009
  Serious: Yes (Hospitalization)
  Sender: FDA-Public Use
  Company Number: None

PATIENT
  Sex: Female
  Weight: 58 kg

DRUGS (1)
  1. TYLENOL (CAPLET) [Suspect]
     Indication: TOOTHACHE
     Dosage: 16 TABLETS PO X 1 DAY
     Route: 048
     Dates: start: 20090407, end: 20090408

REACTIONS (2)
  - CONDITION AGGRAVATED [None]
  - TOOTHACHE [None]
